FAERS Safety Report 22722193 (Version 7)
Quarter: 2023Q4

REPORT INFORMATION
  Report Type: Report from Study
  Country: CA (occurrence: CA)
  Receive Date: 20230719
  Receipt Date: 20231204
  Transmission Date: 20240109
  Serious: Yes (Hospitalization)
  Sender: FDA-Public Use
  Company Number: CA-BoehringerIngelheim-2023-BI-238476

PATIENT
  Age: 81 Year
  Sex: Male

DRUGS (2)
  1. OFEV [Suspect]
     Active Substance: NINTEDANIB
     Indication: Interstitial lung disease
     Route: 048
     Dates: start: 20230417
  2. OFEV [Suspect]
     Active Substance: NINTEDANIB
     Route: 048
     Dates: start: 20231012

REACTIONS (13)
  - Asthenia [Recovering/Resolving]
  - Pneumonia respiratory syncytial viral [Unknown]
  - Fall [Not Recovered/Not Resolved]
  - Dyspnoea [Unknown]
  - Bronchitis chronic [Not Recovered/Not Resolved]
  - Sleep disorder [Unknown]
  - Cachexia [Not Recovered/Not Resolved]
  - Dyspnoea [Unknown]
  - Malaise [Not Recovered/Not Resolved]
  - Productive cough [Not Recovered/Not Resolved]
  - Constipation [Unknown]
  - Fatigue [Not Recovered/Not Resolved]
  - General physical health deterioration [Unknown]
